FAERS Safety Report 10797544 (Version 1)
Quarter: 2015Q1

REPORT INFORMATION
  Report Type: Spontaneous
  Country: US (occurrence: US)
  Receive Date: 20150216
  Receipt Date: 20150216
  Transmission Date: 20150721
  Serious: Yes (Other)
  Sender: FDA-Public Use
  Company Number: US-MYLANLABS-2015M1003403

PATIENT

DRUGS (9)
  1. XTANDI [Suspect]
     Active Substance: ENZALUTAMIDE
     Indication: PROSTATE CANCER
     Dosage: 160 MG, QD
     Route: 048
     Dates: start: 20131014, end: 201404
  2. FISH OIL [Concomitant]
     Active Substance: FISH OIL
  3. CALCIUM D                          /00944201/ [Concomitant]
     Active Substance: CALCIUM CARBONATE\CHOLECALCIFEROL
  4. POTASSIUM CHLORIDE. [Concomitant]
     Active Substance: POTASSIUM CHLORIDE
  5. ASPIRIN                            /00002701/ [Concomitant]
     Active Substance: ASPIRIN
     Dosage: UNK
  6. LISINOPRIL + HIDROCLOROTIAZIDA [Suspect]
     Active Substance: HYDROCHLOROTHIAZIDE\LISINOPRIL
     Indication: HYPERTENSION
     Dosage: 0.5 DF, QD
     Route: 048
  7. LUPRON [Concomitant]
     Active Substance: LEUPROLIDE ACETATE
  8. CASODEX [Concomitant]
     Active Substance: BICALUTAMIDE
  9. TERAZOSIN HYDROCHLORIDE. [Suspect]
     Active Substance: TERAZOSIN HYDROCHLORIDE
     Indication: HYPERTENSION
     Dosage: 5 MG, QD
     Route: 048
     Dates: end: 20140131

REACTIONS (24)
  - Labile blood pressure [Recovered/Resolved]
  - Dizziness [Not Recovered/Not Resolved]
  - Paraesthesia [Recovered/Resolved]
  - Metastases to bone marrow [Not Recovered/Not Resolved]
  - Rash pruritic [Unknown]
  - Asthenia [Unknown]
  - Tremor [Recovered/Resolved]
  - Kyphoscoliosis [Not Recovered/Not Resolved]
  - Constipation [Unknown]
  - Oedema peripheral [Recovering/Resolving]
  - Headache [Recovered/Resolved]
  - Kidney fibrosis [Not Recovered/Not Resolved]
  - Hypotension [Recovered/Resolved]
  - Metastases to bone [Not Recovered/Not Resolved]
  - Fatigue [Unknown]
  - Vision blurred [Recovered/Resolved]
  - Hypogeusia [Unknown]
  - Malaise [Unknown]
  - Hemiparesis [Recovered/Resolved]
  - Lymphadenopathy [Not Recovered/Not Resolved]
  - Varicose vein [Unknown]
  - Pain in extremity [Recovering/Resolving]
  - Cardiac murmur [Unknown]
  - Adverse event [Unknown]

NARRATIVE: CASE EVENT DATE: 201311
